FAERS Safety Report 7269051-6 (Version None)
Quarter: 2011Q1

REPORT INFORMATION
  Report Type: 
  Country: None (occurrence: None)
  Receive Date: 20110202
  Receipt Date: 20110124
  Transmission Date: 20110831
  Serious: Yes (Hospitalization)
  Sender: FDA-Public Use
  Company Number: US-BIOGENIDEC-2011BI002719

PATIENT
  Age: 63 Year
  Sex: Female
  Weight: 58 kg

DRUGS (3)
  1. AVONEX [Suspect]
     Route: 030
     Dates: start: 20110101
  2. AVONEX [Suspect]
     Route: 030
     Dates: end: 20100501
  3. AVONEX [Suspect]
     Indication: MULTIPLE SCLEROSIS
     Route: 030
     Dates: start: 19990101

REACTIONS (10)
  - BACK PAIN [None]
  - DECREASED APPETITE [None]
  - INFLUENZA LIKE ILLNESS [None]
  - PROCEDURAL PAIN [None]
  - WEIGHT DECREASED [None]
  - RETCHING [None]
  - RECTAL HAEMORRHAGE [None]
  - SCOLIOSIS [None]
  - GAIT DISTURBANCE [None]
  - GENERAL SYMPTOM [None]
